FAERS Safety Report 15559723 (Version 1)
Quarter: 2018Q4

REPORT INFORMATION
  Report Type: Spontaneous
  Country: US (occurrence: US)
  Receive Date: 20181022
  Receipt Date: 20181022
  Transmission Date: 20190205
  Serious: No
  Sender: FDA-Public Use
  Company Number: None

PATIENT
  Age: 88 Year
  Sex: Female
  Weight: 22.45 kg

DRUGS (8)
  1. ASA ESTRADIOL [Concomitant]
  2. METOPROLOL SUCCINATE. [Concomitant]
     Active Substance: METOPROLOL SUCCINATE
  3. ATORVASTATIN [Concomitant]
     Active Substance: ATORVASTATIN
  4. DILTIAZEM. [Concomitant]
     Active Substance: DILTIAZEM
  5. CLONIDINE. [Concomitant]
     Active Substance: CLONIDINE
  6. RANEXA [Suspect]
     Active Substance: RANOLAZINE
     Indication: CHEST PAIN
     Route: 048
     Dates: end: 20180716
  7. GABAPENTIN. [Concomitant]
     Active Substance: GABAPENTIN
  8. OMEPRAZOLE. [Concomitant]
     Active Substance: OMEPRAZOLE

REACTIONS (4)
  - Blood sodium decreased [None]
  - Incorrect dosage administered [None]
  - Mental impairment [None]
  - Asthenia [None]

NARRATIVE: CASE EVENT DATE: 20180716
